FAERS Safety Report 11965901 (Version 1)
Quarter: 2016Q1

REPORT INFORMATION
  Report Type: Spontaneous
  Country: AU (occurrence: AU)
  Receive Date: 20160127
  Receipt Date: 20160127
  Transmission Date: 20160526
  Serious: Yes (Life-Threatening)
  Sender: FDA-Public Use
  Company Number: AU-009507513-1601AUS006281

PATIENT
  Age: 64 Year
  Sex: Female

DRUGS (1)
  1. ROCURONIUM BROMIDE. [Suspect]
     Active Substance: ROCURONIUM BROMIDE
     Dosage: UNK, 1 TIME
     Route: 042
     Dates: start: 20150929

REACTIONS (2)
  - Circulatory collapse [Unknown]
  - Hypotension [Unknown]

NARRATIVE: CASE EVENT DATE: 20150929
